FAERS Safety Report 9031386 (Version 1)
Quarter: 2013Q1

REPORT INFORMATION
  Report Type: Spontaneous
  Country: GB (occurrence: GB)
  Receive Date: 20130124
  Receipt Date: 20130124
  Transmission Date: 20140127
  Serious: Yes (Disabling)
  Sender: FDA-Public Use
  Company Number: GB-B.I. PHARMACEUTICALS,INC./RIDGEFIELD-2013-BI-01788YA

PATIENT
  Age: 49 Year
  Sex: Male
  Weight: 98 kg

DRUGS (4)
  1. TAMSULOSINA [Suspect]
     Indication: NOCTURIA
     Dosage: 400 MG
     Route: 048
     Dates: start: 20041201, end: 20080616
  2. TAMSULOSINA [Suspect]
     Indication: URINARY HESITATION
  3. FINASTERIDE [Suspect]
     Indication: URINARY HESITATION
     Dosage: 5 MG
     Route: 048
     Dates: start: 20041201, end: 20080616
  4. FINASTERIDE [Suspect]
     Indication: NOCTURIA

REACTIONS (4)
  - Erectile dysfunction [Not Recovered/Not Resolved]
  - Haematospermia [Recovered/Resolved]
  - Prostate cancer [Recovered/Resolved with Sequelae]
  - Sexual dysfunction [Not Recovered/Not Resolved]
